FAERS Safety Report 6723282-X (Version None)
Quarter: 2010Q2

REPORT INFORMATION
  Report Type: 
  Country: None (occurrence: None)
  Receive Date: 20100512
  Receipt Date: 20100512
  Transmission Date: 20101027
  Serious: No
  Sender: FDA-Public Use
  Company Number: None

PATIENT
  Sex: Male
  Weight: 125.1928 kg

DRUGS (5)
  1. ALLOPURINOL [Suspect]
     Indication: GOUT
     Dosage: 400MG QD PO 2-3 YRS
     Route: 048
  2. PREDNISONE [Concomitant]
  3. PRAVACHOL [Concomitant]
  4. ENALAPRIL [Concomitant]
  5. PRILOSEC OTC [Concomitant]

REACTIONS (1)
  - RASH MACULAR [None]
